FAERS Safety Report 16896631 (Version 1)
Quarter: 2019Q4

REPORT INFORMATION
  Report Type: Spontaneous
  Country: JP (occurrence: JP)
  Receive Date: 20191008
  Receipt Date: 20191008
  Transmission Date: 20200122
  Serious: Yes (Hospitalization)
  Sender: FDA-Public Use
  Company Number: JP-LUNDBECK-DKLU3005635

PATIENT
  Age: 83 Year
  Sex: Male

DRUGS (3)
  1. DOPS [Suspect]
     Active Substance: DROXIDOPA
     Indication: PARKINSON^S DISEASE
     Route: 048
  2. DOPS [Suspect]
     Active Substance: DROXIDOPA
     Indication: PARKINSONIAN GAIT
  3. DOPS [Suspect]
     Active Substance: DROXIDOPA
     Indication: DIZZINESS POSTURAL

REACTIONS (1)
  - Blood creatine phosphokinase increased [Unknown]
